FAERS Safety Report 11352476 (Version 1)
Quarter: 2015Q3

REPORT INFORMATION
  Report Type: Spontaneous
  Country: US (occurrence: US)
  Receive Date: 20150807
  Receipt Date: 20150807
  Transmission Date: 20151125
  Serious: No
  Sender: FDA-Public Use
  Company Number: US-JNJFOC-20150516037

PATIENT
  Age: 70 Year
  Sex: Female
  Weight: 56.7 kg

DRUGS (10)
  1. VITAMIN [Concomitant]
     Active Substance: VITAMINS
     Indication: ALOPECIA
     Dosage: 2 A DAY
     Route: 065
  2. WOMENS ROGAINE UNSCENTED [Suspect]
     Active Substance: MINOXIDIL
     Indication: ALOPECIA
     Dosage: A COUPLE OF SQUIRTS, 2 OR 3 TIMES A WEEK.
     Route: 061
     Dates: start: 20150501, end: 20150520
  3. OXYBUTIN [Concomitant]
     Active Substance: OXYBUTYNIN
     Indication: POLLAKIURIA
     Dosage: 6 MONTHS
     Route: 065
  4. MULTIVITAMINS [Concomitant]
     Active Substance: VITAMINS
     Indication: ROUTINE HEALTH MAINTENANCE
     Dosage: 20 OR 30 YEARS
     Route: 065
  5. VITAMINE B12 [Concomitant]
     Indication: ENERGY INCREASED
     Dosage: 500 MCG, 1X DAILY,
     Route: 065
  6. PREMARIN [Concomitant]
     Active Substance: ESTROGENS, CONJUGATED
     Indication: MENOPAUSE
     Dosage: 30 YEARS AGO
     Route: 065
  7. MAGNESIUM [Concomitant]
     Active Substance: MAGNESIUM
     Indication: ROUTINE HEALTH MAINTENANCE
     Dosage: 6 MONTHS AGO
     Route: 065
  8. FISH OIL [Concomitant]
     Active Substance: FISH OIL
     Indication: ROUTINE HEALTH MAINTENANCE
     Dosage: 2 A DAY, 10 YEARS
     Route: 065
  9. FLAXSEED [Concomitant]
     Active Substance: FLAX SEED
     Indication: ROUTINE HEALTH MAINTENANCE
     Dosage: 6 MONTHS AGO
     Route: 065
  10. WOMENS ROGAINE UNSCENTED [Suspect]
     Active Substance: MINOXIDIL
     Route: 061

REACTIONS (2)
  - Inappropriate schedule of drug administration [Unknown]
  - Alopecia [Not Recovered/Not Resolved]
